FAERS Safety Report 6657978-5 (Version None)
Quarter: 2010Q1

REPORT INFORMATION
  Report Type: 
  Country: None (occurrence: None)
  Receive Date: 20100330
  Receipt Date: 20100329
  Transmission Date: 20100710
  Serious: Yes (Other)
  Sender: FDA-Public Use
  Company Number: A0852115A

PATIENT
  Age: 56 Year
  Sex: Female

DRUGS (2)
  1. NICOTINE [Suspect]
     Indication: SMOKING CESSATION THERAPY
     Route: 062
  2. NICORETTE [Suspect]
     Indication: SMOKING CESSATION THERAPY
     Dates: end: 20100325

REACTIONS (13)
  - ABNORMAL DREAMS [None]
  - DENTAL CARIES [None]
  - EATING DISORDER [None]
  - GINGIVAL PAIN [None]
  - HICCUPS [None]
  - MANIA [None]
  - MASTICATION DISORDER [None]
  - MOUTH ULCERATION [None]
  - NAUSEA [None]
  - ORAL DISCOMFORT [None]
  - ORAL PAIN [None]
  - TOOTHACHE [None]
  - VIRAL INFECTION [None]
